FAERS Safety Report 9580092 (Version 1)
Quarter: 2013Q3

REPORT INFORMATION
  Report Type: Spontaneous
  Country: US (occurrence: None)
  Receive Date: 20130930
  Receipt Date: 20130930
  Transmission Date: 20140515
  Serious: Yes (Life-Threatening)
  Sender: FDA-Public Use
  Company Number: None

PATIENT
  Age: 48 Year
  Sex: Female
  Weight: 65.77 kg

DRUGS (1)
  1. SUBOXONE [Suspect]
     Indication: DRUG DEPENDENCE
     Dosage: 4MG, TWICE DAILY, TAKEN UNDER THE TONGUE
     Dates: start: 20130926, end: 20130928

REACTIONS (8)
  - Glossodynia [None]
  - Swollen tongue [None]
  - Dyspnoea [None]
  - Application site burn [None]
  - Application site inflammation [None]
  - Application site irritation [None]
  - Glossitis [None]
  - Oral disorder [None]
